FAERS Safety Report 10420294 (Version 1)
Quarter: 2014Q3

REPORT INFORMATION
  Report Type: Spontaneous
  Country: US (occurrence: None)
  Receive Date: 20140701
  Receipt Date: 20140701
  Transmission Date: 20150326
  Serious: No
  Sender: FDA-Public Use
  Company Number: 1000066585

PATIENT
  Age: 84 Year
  Sex: Male

DRUGS (18)
  1. LINZESS [Suspect]
     Active Substance: LINACLOTIDE
     Indication: ABDOMINAL PAIN LOWER
     Dosage: 145 MCG (145 MCG, 1 IN 1 D)
     Dates: start: 20140323, end: 20140405
  2. DIOVAN [Concomitant]
     Active Substance: VALSARTAN
  3. VITAMIN C (ASCORBIC ACID) (ASCORBIC ACID) [Concomitant]
  4. MVI (VITAMINS NOS) (VITAMINS NOS) [Concomitant]
  5. LINZESS [Suspect]
     Active Substance: LINACLOTIDE
     Indication: ABDOMINAL PAIN LOWER
     Dosage: 145 MCG (145 MCG, 1 IN 1 D)
     Dates: start: 20140415
  6. BABY ASPIRIN (ACEEEEETYLSALICYLIC ACID) (ACETYLSALICYLIC ACID) [Concomitant]
  7. VITAMIN B12 (CYANOCOBALAMIN) (CYANOCOBALAMIN) [Concomitant]
  8. VITAMIN D3 (COLECALCIFEROL) (COLECALCIFEROL) [Concomitant]
  9. OMEPRAZOLE (OMEPRAZOLE) (OMEPRAZOLE) [Concomitant]
     Active Substance: OMEPRAZOLE
  10. LINZESS [Suspect]
     Active Substance: LINACLOTIDE
     Indication: ABDOMINAL DISTENSION
     Dosage: 145 MCG (145 MCG, 1 IN 1 D)
     Dates: start: 20140323, end: 20140405
  11. LINZESS [Suspect]
     Active Substance: LINACLOTIDE
     Indication: ABDOMINAL DISTENSION
     Dosage: 145 MCG (145 MCG, 1 IN 1 D)
     Dates: start: 20140415
  12. OCUVITE (OMEGA-3, LUTEIN, ZEAXANTHIN) (OMEGA-3, LUTEIN, ZEAXANTHIN) [Concomitant]
  13. METOPROLOL (METOPROLOL) (METOPROLOL) [Concomitant]
     Active Substance: METOPROLOL
  14. METAMUCIL (PSYLLIUM FIBRE) (PSYLLIUM FIBRE) [Concomitant]
  15. KLOR CON (POTASSIUM CHLORIDE) [Concomitant]
  16. BETA-CAROTENE (BETACAROTENE) (BETACAROTENE) [Concomitant]
  17. FOLIC ACID (FOLIC ACID) (FOLIC ACID) [Concomitant]
     Active Substance: FOLIC ACID
  18. ATORVASTATIN (ATORVASTATIN) (ATORVASTATIN) [Concomitant]
     Active Substance: ATORVASTATIN

REACTIONS (2)
  - Off label use [None]
  - Diarrhoea [None]

NARRATIVE: CASE EVENT DATE: 201403
